FAERS Safety Report 10721123 (Version 1)
Quarter: 2015Q1

REPORT INFORMATION
  Report Type: Spontaneous
  Country: US (occurrence: US)
  Receive Date: 20150119
  Receipt Date: 20150119
  Transmission Date: 20150721
  Serious: No
  Sender: FDA-Public Use
  Company Number: US-UNITED THERAPEUTICS-UNT-2014-008282

PATIENT
  Age: 65 Year
  Sex: Female

DRUGS (1)
  1. TYVASO [Suspect]
     Active Substance: TREPROSTINIL
     Indication: PULMONARY HYPERTENSION
     Dosage: 72 MICROGRAMS, QID
     Dates: start: 20110418

REACTIONS (2)
  - Tinnitus [Unknown]
  - Glossodynia [Unknown]

NARRATIVE: CASE EVENT DATE: 20140901
